FAERS Safety Report 13426640 (Version 1)
Quarter: 2017Q2

REPORT INFORMATION
  Report Type: Spontaneous
  Country: US (occurrence: US)
  Receive Date: 20170411
  Receipt Date: 20170411
  Transmission Date: 20170830
  Serious: Yes (Other)
  Sender: FDA-Public Use
  Company Number: None

PATIENT
  Age: 26 Year
  Sex: Male
  Weight: 72.58 kg

DRUGS (1)
  1. SUBUTEX [Suspect]
     Active Substance: BUPRENORPHINE HYDROCHLORIDE
     Indication: DRUG USE DISORDER
     Dosage: PARTIALLY ILLEGIBLE

REACTIONS (4)
  - Agitation [None]
  - Hypersensitivity [None]
  - Urticaria [None]
  - Rash [None]

NARRATIVE: CASE EVENT DATE: 201407
